FAERS Safety Report 9348354 (Version 1)
Quarter: 2013Q2

REPORT INFORMATION
  Report Type: Spontaneous
  Country: US (occurrence: US)
  Receive Date: 20130614
  Receipt Date: 20130614
  Transmission Date: 20140414
  Serious: No
  Sender: FDA-Public Use
  Company Number: US-PFIZER INC-2013175592

PATIENT
  Age: 69 Year
  Sex: Female
  Weight: 65.76 kg

DRUGS (4)
  1. LEVOTHYROXINE SODIUM [Suspect]
     Indication: HYPOTHYROIDISM
     Dosage: 75 UG, 1X/DAY
     Route: 048
     Dates: start: 20130601, end: 201306
  2. LEVOTHYROXINE SODIUM [Suspect]
     Dosage: UNK
     Route: 048
     Dates: start: 201306
  3. HYDROCORTISONE [Concomitant]
     Indication: CUSHING^S SYNDROME
     Dosage: UNK
  4. FLORINEF [Concomitant]
     Dosage: UNK

REACTIONS (4)
  - Drug intolerance [Unknown]
  - Gastrointestinal pain [Unknown]
  - Flatulence [Unknown]
  - Nausea [Unknown]
